FAERS Safety Report 5364324-6 (Version None)
Quarter: 2007Q2

REPORT INFORMATION
  Report Type: 
  Country: None (occurrence: None)
  Receive Date: 20070620
  Receipt Date: 20070611
  Transmission Date: 20071010
  Serious: Yes (Hospitalization, Other)
  Sender: FDA-Public Use
  Company Number: US-MERCK-0704USA03251

PATIENT
  Age: 57 Year
  Sex: Female

DRUGS (2)
  1. FOSAMAX [Suspect]
     Indication: OSTEOPOROSIS
     Route: 048
     Dates: start: 19970401
  2. ZOMETA [Concomitant]
     Indication: OSTEOPOROSIS
     Route: 042
     Dates: start: 19970701

REACTIONS (3)
  - ANXIETY [None]
  - DEPRESSION [None]
  - OSTEONECROSIS [None]
